FAERS Safety Report 9482038 (Version 2)
Quarter: 2013Q3

REPORT INFORMATION
  Report Type: Report from Study
  Country: US (occurrence: US)
  Receive Date: 20130828
  Receipt Date: 20130913
  Transmission Date: 20140515
  Serious: Yes (Other)
  Sender: FDA-Public Use
  Company Number: US-JNJFOC-20130813378

PATIENT
  Age: 11 Year
  Sex: Female
  Weight: 30 kg

DRUGS (14)
  1. REMICADE [Suspect]
     Indication: INFLAMMATORY BOWEL DISEASE
     Route: 042
     Dates: start: 20110309, end: 20111215
  2. CEFDINIR [Concomitant]
     Route: 065
  3. AMOXICILLIN [Concomitant]
     Route: 065
  4. RISPERDAL [Concomitant]
     Route: 065
  5. HUMIRA [Concomitant]
     Indication: INFLAMMATORY BOWEL DISEASE
     Route: 065
     Dates: start: 20120210
  6. 5-ASA [Concomitant]
     Indication: INFLAMMATORY BOWEL DISEASE
     Route: 048
  7. NYSTATIN [Concomitant]
     Route: 065
  8. FLOVENT [Concomitant]
     Route: 065
  9. DEPAKOTE [Concomitant]
     Route: 065
  10. PENICILLIN V POTASSIUM [Concomitant]
     Route: 065
  11. CATAPRES [Concomitant]
     Route: 065
  12. PRO AIR [Concomitant]
     Route: 065
  13. ZYRTEC [Concomitant]
     Route: 065
  14. BENADRYL [Concomitant]
     Route: 065

REACTIONS (1)
  - Clostridium difficile infection [Recovered/Resolved]
